FAERS Safety Report 22304542 (Version 1)
Quarter: 2023Q2

REPORT INFORMATION
  Report Type: Spontaneous
  Country: US (occurrence: None)
  Receive Date: 20230509
  Receipt Date: 20230509
  Transmission Date: 20230722
  Serious: Yes (Hospitalization)
  Sender: FDA-Public Use
  Company Number: None

PATIENT
  Age: 86 Year
  Sex: Female
  Weight: 55.47 kg

DRUGS (5)
  1. LENALIDOMIDE [Suspect]
     Active Substance: LENALIDOMIDE
     Indication: Plasma cell myeloma
     Dosage: 5MG DAILY ORAL
     Route: 048
  2. DRONABINOL [Concomitant]
     Active Substance: DRONABINOL
  3. METOPROLOL TARTRATE [Concomitant]
  4. VALSARTAN [Concomitant]
     Active Substance: VALSARTAN
  5. ASPRIN 81 [Concomitant]

REACTIONS (2)
  - Urinary tract infection [None]
  - Therapy interrupted [None]
